FAERS Safety Report 8088767-5 (Version None)
Quarter: 2012Q1

REPORT INFORMATION
  Report Type: 
  Country: None (occurrence: None)
  Receive Date: 20120128
  Receipt Date: 20110527
  Transmission Date: 20120608
  Serious: No
  Sender: FDA-Public Use
  Company Number: US-ABBOTT-11P-163-0729822-00

PATIENT
  Age: 58 Year
  Sex: Female
  Weight: 61.744 kg

DRUGS (1)
  1. HUMIRA [Suspect]
     Indication: CROHN'S DISEASE
     Dates: start: 20080101

REACTIONS (6)
  - DYSURIA [None]
  - NAIL DISCOLOURATION [None]
  - MICTURITION URGENCY [None]
  - CYSTITIS [None]
  - ONYCHOMADESIS [None]
  - ONYCHOMYCOSIS [None]
